FAERS Safety Report 16537955 (Version 2)
Quarter: 2019Q3

REPORT INFORMATION
  Report Type: Spontaneous
  Country: US (occurrence: US)
  Receive Date: 20190708
  Receipt Date: 20190715
  Transmission Date: 20191004
  Serious: No
  Sender: FDA-Public Use
  Company Number: US-SA-2019SA175029

PATIENT
  Age: 63 Year
  Sex: Female

DRUGS (4)
  1. LANTUS [Suspect]
     Active Substance: INSULIN GLARGINE
     Indication: TYPE 2 DIABETES MELLITUS
     Dosage: 48 U, QD
     Route: 065
  2. LANTUS [Suspect]
     Active Substance: INSULIN GLARGINE
     Dosage: 50 TO 70UNITS DAILY
     Route: 065
  3. LANTUS [Suspect]
     Active Substance: INSULIN GLARGINE
     Dosage: 50 TO 65UNITS DAILY
     Route: 065
  4. OZEMPIC [Concomitant]
     Active Substance: SEMAGLUTIDE

REACTIONS (2)
  - Blood glucose increased [Unknown]
  - Device breakage [Unknown]
